FAERS Safety Report 20123464 (Version 1)
Quarter: 2021Q4

REPORT INFORMATION
  Report Type: Other
  Country: None (occurrence: TH)
  Receive Date: 20211129
  Receipt Date: 20211129
  Transmission Date: 20220303
  Serious: Yes (Life-Threatening, Hospitalization)
  Sender: FDA-Public Use
  Company Number: TH-Ajanta Pharma USA Inc.-2122407

PATIENT
  Age: 62 Year
  Sex: Female

DRUGS (8)
  1. METFORMIN HYDROCHLORIDE [Suspect]
     Active Substance: METFORMIN HYDROCHLORIDE
     Indication: Type 2 diabetes mellitus
     Dates: start: 201905
  2. AMLODIPINE [Suspect]
     Active Substance: AMLODIPINE BESYLATE
     Dates: start: 201905
  3. RIBOCICLIB [Suspect]
     Active Substance: RIBOCICLIB
     Dates: start: 201909, end: 2019
  4. LOSARTAN [Suspect]
     Active Substance: LOSARTAN
     Dates: start: 201905
  5. SIMVASTATIN [Suspect]
     Active Substance: SIMVASTATIN
     Dates: start: 201905
  6. FULVESTRANT [Concomitant]
     Active Substance: FULVESTRANT
     Dates: start: 201905
  7. PALBOCICLIB [Concomitant]
     Active Substance: PALBOCICLIB
     Dates: start: 201905
  8. GLIPIZIDE [Concomitant]
     Active Substance: GLIPIZIDE
     Dates: start: 201905

REACTIONS (4)
  - Drug interaction [Recovered/Resolved]
  - Lactic acidosis [Recovered/Resolved]
  - Acute respiratory failure [Recovered/Resolved]
  - Acute kidney injury [Recovered/Resolved]
